FAERS Safety Report 4378626-3 (Version None)
Quarter: 2004Q2

REPORT INFORMATION
  Report Type: 
  Country: None (occurrence: None)
  Receive Date: 20040609
  Receipt Date: 20040527
  Transmission Date: 20050107
  Serious: Yes (Other)
  Sender: FDA-Public Use
  Company Number: HQWYE122327MAY04

PATIENT
  Sex: Female

DRUGS (1)
  1. EFFEXOR [Suspect]
     Indication: DEPRESSION
     Dosage: 150 MG 1X PER 1 DAY ORAL
     Route: 048

REACTIONS (3)
  - CARDIOMEGALY [None]
  - DRUG WITHDRAWAL SYNDROME [None]
  - HYPERTENSION [None]
